FAERS Safety Report 12608818 (Version 3)
Quarter: 2019Q1

REPORT INFORMATION
  Report Type: Spontaneous
  Country: BR (occurrence: BR)
  Receive Date: 20160729
  Receipt Date: 20190116
  Transmission Date: 20190417
  Serious: Yes (Hospitalization)
  Sender: FDA-Public Use
  Company Number: BR-JNJFOC-20160717856

PATIENT
  Sex: Male
  Weight: 70 kg

DRUGS (1)
  1. TYLENOL 750 [Suspect]
     Active Substance: ACETAMINOPHEN
     Indication: PYREXIA
     Route: 048

REACTIONS (3)
  - Abdominal pain [Recovered/Resolved]
  - Drug ineffective [Unknown]
  - Liver disorder [Recovered/Resolved]
